FAERS Safety Report 8357259-8 (Version None)
Quarter: 2012Q2

REPORT INFORMATION
  Report Type: 
  Country: None (occurrence: None)
  Receive Date: 20120514
  Receipt Date: 20120509
  Transmission Date: 20120825
  Serious: Yes (Other)
  Sender: FDA-Public Use
  Company Number: PHEH2012US009796

PATIENT
  Sex: Female

DRUGS (2)
  1. DIOVAN [Suspect]
     Dosage: 1 DF (320 MG), QD
  2. AMLODIPINE BESYLATE [Concomitant]
     Dosage: 1 DF (5 MG), QD

REACTIONS (1)
  - MULTIPLE SCLEROSIS [None]
